FAERS Safety Report 7353400-4 (Version None)
Quarter: 2011Q1

REPORT INFORMATION
  Report Type: 
  Country: None (occurrence: None)
  Receive Date: 20110315
  Receipt Date: 20110310
  Transmission Date: 20110831
  Serious: Yes (Other)
  Sender: FDA-Public Use
  Company Number: US-ABBOTT-11P-163-0711092-00

PATIENT
  Sex: Female
  Weight: 88.53 kg

DRUGS (1)
  1. HUMIRA [Suspect]
     Indication: ANKYLOSING SPONDYLITIS
     Dates: start: 20110207, end: 20110301

REACTIONS (2)
  - SWELLING [None]
  - ANAPHYLACTIC SHOCK [None]
